FAERS Safety Report 21199761 (Version 1)
Quarter: 2022Q3

REPORT INFORMATION
  Report Type: Report from Study
  Country: DE (occurrence: DE)
  Receive Date: 20220811
  Receipt Date: 20220811
  Transmission Date: 20221027
  Serious: No
  Sender: FDA-Public Use
  Company Number: DE-BAXTER-2022BAX017049

PATIENT
  Sex: Male

DRUGS (3)
  1. AMINO ACIDS\DEXTROSE\ELECTROLYTES NOS\SOYBEAN OIL [Suspect]
     Active Substance: AMINO ACIDS\DEXTROSE\ELECTROLYTES NOS\SOYBEAN OIL
     Indication: Parenteral nutrition
     Dosage: 1435 ML, 4X WEEKLY, (ROUTE: CENTRAL VENOUS AND INFUSION RATE: 120ML/H)
     Route: 042
     Dates: start: 20220523
  2. ELECTROLYTES NOS\MINERALS [Suspect]
     Active Substance: ELECTROLYTES NOS\MINERALS
     Indication: Parenteral nutrition
     Dosage: 10 ML, 4X WEEKLY, (ROUTE: CENTRAL VENOUS AND INFUSION RATE: 120ML/H)
     Route: 042
     Dates: start: 20220523
  3. UNSPECIFIED INGREDIENT [Suspect]
     Active Substance: UNSPECIFIED INGREDIENT
     Route: 065

REACTIONS (1)
  - Pyrexia [Unknown]

NARRATIVE: CASE EVENT DATE: 20220804
